FAERS Safety Report 8240201-8 (Version None)
Quarter: 2012Q1

REPORT INFORMATION
  Report Type: 
  Country: None (occurrence: None)
  Receive Date: 20120328
  Receipt Date: 20120319
  Transmission Date: 20120608
  Serious: Yes (Other)
  Sender: FDA-Public Use
  Company Number: CA-JNJFOC-20120309943

PATIENT
  Sex: Female
  Weight: 79.5 kg

DRUGS (6)
  1. REMICADE [Suspect]
     Indication: CROHN'S DISEASE
     Route: 042
     Dates: start: 20050101
  2. CARDIZEM [Concomitant]
     Route: 065
  3. RITALIN [Concomitant]
     Route: 065
  4. CODEINE [Concomitant]
     Dosage: AS NECESSARY
     Route: 065
  5. VENTOLIN [Concomitant]
     Dosage: PUFF AS NECESSARY
     Route: 065
  6. TRAMADOL HCL [Concomitant]
     Dosage: AS NECESSARY
     Route: 065

REACTIONS (2)
  - INFUSION RELATED REACTION [None]
  - SINUS TACHYCARDIA [None]
